FAERS Safety Report 20720984 (Version 1)
Quarter: 2022Q2

REPORT INFORMATION
  Report Type: Spontaneous
  Country: US (occurrence: US)
  Receive Date: 20220418
  Receipt Date: 20220418
  Transmission Date: 20220720
  Serious: Yes (Hospitalization)
  Sender: FDA-Public Use
  Company Number: US-TARO-2022TAR00525

PATIENT

DRUGS (1)
  1. HYDROCORTISONE [Suspect]
     Active Substance: HYDROCORTISONE
     Indication: Rash
     Dosage: UNK, WRIST
     Route: 061
     Dates: start: 20220402

REACTIONS (6)
  - Rash macular [Unknown]
  - Pain [Unknown]
  - Swelling [Unknown]
  - Erythema [Unknown]
  - Infection [Recovering/Resolving]
  - Skin burning sensation [Unknown]

NARRATIVE: CASE EVENT DATE: 20220402
